FAERS Safety Report 15432395 (Version 1)
Quarter: 2018Q3

REPORT INFORMATION
  Report Type: Spontaneous
  Country: US (occurrence: US)
  Receive Date: 20180926
  Receipt Date: 20180926
  Transmission Date: 20181010
  Serious: No
  Sender: FDA-Public Use
  Company Number: US-UNITED THERAPEUTICS-UNT-2018-014538

PATIENT
  Sex: Female
  Weight: 58.5 kg

DRUGS (3)
  1. AMLODIPINE [Concomitant]
     Active Substance: AMLODIPINE BESYLATE
     Indication: PRODUCT USED FOR UNKNOWN INDICATION
     Route: 065
  2. REMODULIN [Suspect]
     Active Substance: TREPROSTINIL
     Dosage: 0.018 ?G/KG, CONTINUING
     Route: 058
  3. REMODULIN [Suspect]
     Active Substance: TREPROSTINIL
     Indication: PULMONARY ARTERIAL HYPERTENSION
     Dosage: 0.010 ?G/KG, CONTINUING
     Route: 058
     Dates: start: 20180730

REACTIONS (7)
  - Vomiting [Unknown]
  - Infusion site swelling [Recovered/Resolved]
  - Pain in jaw [Unknown]
  - Myalgia [Unknown]
  - Insomnia [Unknown]
  - Infusion site erythema [Recovered/Resolved]
  - Infusion site pain [Recovered/Resolved]

NARRATIVE: CASE EVENT DATE: 2018
